FAERS Safety Report 7998357-8 (Version None)
Quarter: 2011Q4

REPORT INFORMATION
  Report Type: 
  Country: None (occurrence: None)
  Receive Date: 20111221
  Receipt Date: 20110812
  Transmission Date: 20120403
  Serious: No
  Sender: FDA-Public Use
  Company Number: US-GLAXOSMITHKLINE-A0940913A

PATIENT
  Age: 62 Year
  Sex: Male

DRUGS (7)
  1. COREG [Concomitant]
  2. LOVAZA [Suspect]
     Indication: CORONARY ARTERIAL STENT INSERTION
     Dosage: 1CAP PER DAY
     Route: 048
     Dates: start: 20100801
  3. CELEBREX [Concomitant]
  4. ADVAIR DISKUS 100/50 [Concomitant]
  5. IBUPROFEN (ADVIL) [Concomitant]
  6. MULTI-VITAMIN [Concomitant]
  7. SYNVISC [Concomitant]

REACTIONS (1)
  - BLOOD IRON INCREASED [None]
